FAERS Safety Report 8552585-1 (Version None)
Quarter: 2012Q3

REPORT INFORMATION
  Report Type: 
  Country: None (occurrence: None)
  Receive Date: 20120731
  Receipt Date: 20101101
  Transmission Date: 20120928
  Serious: Yes (Other)
  Sender: FDA-Public Use
  Company Number: US-BAYER-201019933NA

PATIENT
  Age: 20 Year
  Sex: Female
  Weight: 53.636 kg

DRUGS (17)
  1. YAZ [Suspect]
     Indication: CONTRACEPTION
     Route: 048
     Dates: start: 20090309
  2. ADDERALL 5 [Concomitant]
     Indication: PRODUCT USED FOR UNKNOWN INDICATION
     Dosage: 1  CAPSULE QD IN AM
     Route: 048
  3. ACIPHEX [Concomitant]
  4. KEPTRA [Concomitant]
     Indication: PRODUCT USED FOR UNKNOWN INDICATION
     Dosage: DAILY DOSE 500 MG
     Route: 048
  5. ZOLOFT [Concomitant]
     Indication: DEPRESSION
     Dosage: DAILY DOSE 50 MG
     Route: 048
  6. MAXALT [Concomitant]
     Indication: PRODUCT USED FOR UNKNOWN INDICATION
     Dosage: DAILY DOSE 10 MG
     Route: 048
  7. BENTYL [Concomitant]
     Route: 048
  8. YASMIN [Suspect]
     Indication: PRODUCT USED FOR UNKNOWN INDICATION
     Route: 048
     Dates: start: 20080101
  9. WELLBUTRIN [Concomitant]
     Indication: PRODUCT USED FOR UNKNOWN INDICATION
     Dosage: DAILY DOSE 150 MG
     Route: 048
  10. UNKNOWN DRUG [Concomitant]
     Indication: DYSPNOEA
     Route: 065
     Dates: start: 20000101
  11. PREVACID [Concomitant]
     Indication: GASTROOESOPHAGEAL REFLUX DISEASE
     Dosage: CAPSULE DELAYED QD BEFORE MEAL
     Route: 048
  12. UNKNOWN DRUG [Concomitant]
     Indication: ASTHMA
  13. ADVAIR DISKUS 100/50 [Concomitant]
  14. IBUPROFEN [Concomitant]
     Indication: PRODUCT USED FOR UNKNOWN INDICATION
     Route: 065
  15. ACETAMINOPHEN W/ CODEINE [Concomitant]
  16. ASTELIN [Concomitant]
     Dosage: 2 SPRAYS IN EACH NOSTRIL TWICE QD.
     Route: 055
  17. LEVETIRACETAM [Concomitant]

REACTIONS (4)
  - CHOLECYSTITIS CHRONIC [None]
  - DYSPNOEA [None]
  - ABDOMINAL PAIN [None]
  - BILIARY DYSKINESIA [None]
